FAERS Safety Report 21485631 (Version 3)
Quarter: 2023Q2

REPORT INFORMATION
  Report Type: Report from Study
  Country: US (occurrence: US)
  Receive Date: 20221020
  Receipt Date: 20230511
  Transmission Date: 20230722
  Serious: No
  Sender: FDA-Public Use
  Company Number: US-SA-SAC20221018001309

PATIENT
  Age: 86 Year
  Sex: Male

DRUGS (2)
  1. CABAZITAXEL [Suspect]
     Active Substance: CABAZITAXEL
     Indication: Prostate cancer
     Dosage: 40 MG, Q3W
     Route: 042
     Dates: start: 20220629
  2. CABAZITAXEL [Suspect]
     Active Substance: CABAZITAXEL
     Dosage: 400 MG/ML, Q3W (600 MG/ 1.5 ML; Q3W)
     Route: 041
     Dates: start: 20220726, end: 20230505

REACTIONS (2)
  - Weight increased [Unknown]
  - Weight decreased [Unknown]

NARRATIVE: CASE EVENT DATE: 20230413
